FAERS Safety Report 4699919-6 (Version None)
Quarter: 2005Q2

REPORT INFORMATION
  Report Type: 
  Country: None (occurrence: None)
  Receive Date: 20050624
  Receipt Date: 20050406
  Transmission Date: 20051028
  Serious: Yes (Death)
  Sender: FDA-Public Use
  Company Number: US-MERCK-0504USA01047

PATIENT
  Age: 50 Year
  Sex: Male
  Weight: 118 kg

DRUGS (4)
  1. VIOXX [Suspect]
     Indication: ARTHRITIS
     Route: 048
     Dates: start: 19990101, end: 20030329
  2. VIOXX [Suspect]
     Route: 048
  3. DARVOCET-N 100 [Concomitant]
     Indication: BACK INJURY
     Route: 065
     Dates: start: 19900101, end: 20030329
  4. DARVOCET-N 100 [Concomitant]
     Indication: BACK PAIN
     Route: 065
     Dates: start: 19900101, end: 20030329

REACTIONS (2)
  - HYPERTENSION [None]
  - MYOCARDIAL INFARCTION [None]
